FAERS Safety Report 7936656-6 (Version None)
Quarter: 2011Q4

REPORT INFORMATION
  Report Type: 
  Country: None (occurrence: None)
  Receive Date: 20111123
  Receipt Date: 20111111
  Transmission Date: 20120403
  Serious: No
  Sender: FDA-Public Use
  Company Number: US-B.I. PHARMACEUTICALS,INC./RIDGEFIELD-2011-BP-26063BP

PATIENT
  Age: 77 Year
  Sex: Male

DRUGS (7)
  1. PRILOSEC [Concomitant]
     Indication: GASTROOESOPHAGEAL REFLUX DISEASE
     Dosage: 40 MG
     Route: 048
  2. ZOCOR [Concomitant]
     Indication: BLOOD CHOLESTEROL INCREASED
     Dosage: 80 MG
     Route: 048
  3. METFORMIN [Concomitant]
     Indication: DIABETES MELLITUS
     Dosage: 1000 MG
     Route: 048
  4. PROVENTIL [Concomitant]
     Indication: DYSPNOEA
     Route: 055
  5. AMBIEN [Concomitant]
     Indication: INSOMNIA
     Dosage: 10 MG
     Route: 048
  6. PRADAXA [Suspect]
     Indication: ATRIAL FIBRILLATION
     Dosage: 300 MG
     Route: 048
     Dates: start: 20110923
  7. MULTAQ [Suspect]
     Indication: ARTHRITIS
     Dosage: 800 MG
     Route: 048
     Dates: start: 20110601

REACTIONS (2)
  - OEDEMA PERIPHERAL [None]
  - ASTHENIA [None]
